FAERS Safety Report 7736831-X (Version None)
Quarter: 2011Q3

REPORT INFORMATION
  Report Type: 
  Country: None (occurrence: None)
  Receive Date: 20110908
  Receipt Date: 20110908
  Transmission Date: 20111222
  Serious: Yes (Other)
  Sender: FDA-Public Use
  Company Number: None

PATIENT
  Age: 36 Year
  Sex: Female
  Weight: 54.431 kg

DRUGS (4)
  1. FLUCONAZOLE [Concomitant]
  2. MICONAZOLE [Concomitant]
  3. MIRENA [Suspect]
     Indication: CONTRACEPTION
     Dosage: 1
     Route: 015
     Dates: start: 20090106, end: 20110902
  4. TRICONAZOLE [Concomitant]

REACTIONS (1)
  - VULVOVAGINAL MYCOTIC INFECTION [None]
